FAERS Safety Report 10451952 (Version 1)
Quarter: 2014Q3

REPORT INFORMATION
  Report Type: Spontaneous
  Country: AR (occurrence: AR)
  Receive Date: 20140915
  Receipt Date: 20140915
  Transmission Date: 20150326
  Serious: Yes (Other)
  Sender: FDA-Public Use
  Company Number: AR-009507513-1409ARG004708

PATIENT
  Age: 55 Year
  Sex: Female

DRUGS (3)
  1. VICTRELIS [Suspect]
     Active Substance: BOCEPREVIR
     Indication: CHRONIC HEPATITIS C
     Dosage: 3 TIMES PER DAY (4 CAPSULES EACH TIME)
     Route: 048
     Dates: start: 20140704
  2. REBETOL [Suspect]
     Active Substance: RIBAVIRIN
     Indication: CHRONIC HEPATITIS C
     Dosage: 2 DF, TID, 3 TIMES PER DAY (2 CAPSULES EACH TIME)
     Route: 048
     Dates: start: 20140606
  3. INTRON A [Suspect]
     Active Substance: INTERFERON ALFA-2B
     Indication: CHRONIC HEPATITIS C
     Dosage: UNK, WEEKLY
     Route: 058
     Dates: start: 20140606

REACTIONS (7)
  - Dry skin [Not Recovered/Not Resolved]
  - Dry mouth [Not Recovered/Not Resolved]
  - Eyelid ptosis [Not Recovered/Not Resolved]
  - Nausea [Not Recovered/Not Resolved]
  - Anaemia [Not Recovered/Not Resolved]
  - Constipation [Not Recovered/Not Resolved]
  - Weight decreased [Not Recovered/Not Resolved]

NARRATIVE: CASE EVENT DATE: 20140606
